FAERS Safety Report 4682557-9 (Version None)
Quarter: 2005Q2

REPORT INFORMATION
  Report Type: 
  Country: None (occurrence: None)
  Receive Date: 20050602
  Receipt Date: 20050602
  Transmission Date: 20051028
  Serious: Yes (Hospitalization)
  Sender: FDA-Public Use
  Company Number: None

PATIENT
  Age: 77 Year
  Sex: Male
  Weight: 63 kg

DRUGS (6)
  1. GEMCITABINE 1GM/M2 [Suspect]
     Indication: PANCREATIC CARCINOMA
     Dosage: 1.8 GMS D1, 8, 15 I.V.
     Route: 042
     Dates: start: 20050509, end: 20050523
  2. GW 572016 1500MG [Suspect]
     Indication: PANCREATIC CARCINOMA
     Dates: start: 20050509, end: 20050530
  3. LESCOL [Concomitant]
  4. NORVASC [Concomitant]
  5. FENTANYL [Concomitant]
  6. OXYCODONE HCL [Concomitant]

REACTIONS (4)
  - DEHYDRATION [None]
  - DIARRHOEA [None]
  - NAUSEA [None]
  - VOMITING [None]
